FAERS Safety Report 5007566-1 (Version None)
Quarter: 2006Q2

REPORT INFORMATION
  Report Type: 
  Country: None (occurrence: None)
  Receive Date: 20060522
  Receipt Date: 20060511
  Transmission Date: 20061013
  Serious: Yes (Hospitalization)
  Sender: FDA-Public Use
  Company Number: GB-BRISTOL-MYERS SQUIBB COMPANY-13374665

PATIENT
  Age: 36 Year
  Sex: Male
  Weight: 72 kg

DRUGS (5)
  1. CISPLATIN [Suspect]
     Indication: TESTIS CANCER
     Route: 042
  2. ETOPOSIDE [Suspect]
     Indication: TESTIS CANCER
     Route: 042
  3. NEUPOGEN [Concomitant]
     Indication: NEUTROPENIA
     Route: 058
  4. DEXAMETHASONE [Concomitant]
     Indication: NAUSEA
     Route: 048
  5. GRANISETRON  HCL [Concomitant]
     Indication: NAUSEA
     Route: 048

REACTIONS (4)
  - COUGH [None]
  - NEUTROPENIC SEPSIS [None]
  - PHARYNGOLARYNGEAL PAIN [None]
  - PYREXIA [None]
